FAERS Safety Report 7262103-6 (Version None)
Quarter: 2011Q1

REPORT INFORMATION
  Report Type: 
  Country: None (occurrence: None)
  Receive Date: 20110130
  Receipt Date: 20101130
  Transmission Date: 20110831
  Serious: No
  Sender: FDA-Public Use
  Company Number: US-ABBOTT-10P-163-0689054-00

PATIENT
  Sex: Male
  Weight: 122.58 kg

DRUGS (13)
  1. PENTASA [Concomitant]
     Indication: CROHN'S DISEASE
  2. ENDOCORT EC [Concomitant]
     Indication: CROHN'S DISEASE
  3. PROTONIX [Concomitant]
     Indication: GASTROOESOPHAGEAL REFLUX DISEASE
  4. BELLADONNA [Concomitant]
     Indication: ABDOMINAL DISCOMFORT
  5. BELLADONNA [Concomitant]
     Indication: CROHN'S DISEASE
  6. PREDNISONE [Concomitant]
     Indication: CROHN'S DISEASE
     Dosage: AS NEEDED, TAPERING DOSE.
  7. LIBRAX [Concomitant]
     Indication: CROHN'S DISEASE
  8. VERAMYST [Concomitant]
     Indication: SLEEP APNOEA SYNDROME
     Dosage: 1 SPRAY INTO EACH NOSTRIL BEFORE BED.
     Route: 045
  9. LOMOTIL [Concomitant]
     Indication: DIARRHOEA
  10. HUMIRA [Suspect]
     Indication: CROHN'S DISEASE
     Route: 058
     Dates: start: 20080101
  11. LIBRAX [Concomitant]
  12. LOMOTIL [Concomitant]
  13. EXFORGE [Concomitant]
     Indication: HYPERTENSION
     Dosage: 10/320/25 DAILY

REACTIONS (2)
  - BLOOD GLUCOSE INCREASED [None]
  - TYPE 2 DIABETES MELLITUS [None]
